FAERS Safety Report 17264198 (Version 2)
Quarter: 2020Q1

REPORT INFORMATION
  Report Type: Spontaneous
  Country: US (occurrence: US)
  Receive Date: 20200113
  Receipt Date: 20200303
  Transmission Date: 20200409
  Serious: No
  Sender: FDA-Public Use
  Company Number: US-ELI_LILLY_AND_COMPANY-US202001000963

PATIENT
  Sex: Female
  Weight: 66 kg

DRUGS (3)
  1. BAQSIMI [Suspect]
     Active Substance: GLUCAGON
     Indication: BLOOD GLUCOSE DECREASED
     Dosage: 1 DOSAGE FORM, SINGLE
     Route: 045
     Dates: start: 20200101
  2. OXYCODONE [Concomitant]
     Active Substance: OXYCODONE
     Indication: PRODUCT USED FOR UNKNOWN INDICATION
     Dosage: UNK, UNKNOWN
     Route: 065
  3. GABAPENTIN. [Concomitant]
     Active Substance: GABAPENTIN
     Indication: PRODUCT USED FOR UNKNOWN INDICATION
     Dosage: UNK, UNKNOWN
     Route: 065

REACTIONS (7)
  - Swelling face [Recovered/Resolved]
  - Rhinalgia [Recovered/Resolved]
  - Lip swelling [Recovered/Resolved]
  - Hypoglycaemia [Recovered/Resolved]
  - Sinus pain [Recovering/Resolving]
  - Nausea [Recovered/Resolved]
  - Lacrimation increased [Recovered/Resolved]
